FAERS Safety Report 12983212 (Version 1)
Quarter: 2016Q4

REPORT INFORMATION
  Report Type: Spontaneous
  Country: US (occurrence: US)
  Receive Date: 20161129
  Receipt Date: 20161129
  Transmission Date: 20170207
  Serious: Yes (Hospitalization)
  Sender: FDA-Public Use
  Company Number: US-SAGENTPRD-2016-US-000065

PATIENT
  Age: 71 Year
  Sex: Male

DRUGS (3)
  1. LEUCOVORIN CALCIUM FOR INJECTION [Suspect]
     Active Substance: LEUCOVORIN CALCIUM
     Dosage: UNKNOWN
  2. IRINOTECAN [Concomitant]
     Active Substance: IRINOTECAN
  3. FLUOROURACIL. [Concomitant]
     Active Substance: FLUOROURACIL

REACTIONS (3)
  - Peritoneal adhesions [Recovered/Resolved]
  - Decreased appetite [Recovered/Resolved]
  - Intestinal strangulation [Recovered/Resolved]
